FAERS Safety Report 11664415 (Version 1)
Quarter: 2015Q4

REPORT INFORMATION
  Report Type: Report from Study
  Country: US (occurrence: US)
  Receive Date: 20151027
  Receipt Date: 20151027
  Transmission Date: 20160304
  Serious: No
  Sender: FDA-Public Use
  Company Number: PHEH2015US009091

PATIENT
  Sex: Male
  Weight: 57.9 kg

DRUGS (1)
  1. EXJADE [Suspect]
     Active Substance: DEFERASIROX
     Indication: THALASSAEMIA
     Dosage: 2000 MG ALTERNATING WITH 2500 MG EVERY OTHER DAY
     Route: 065
     Dates: start: 20070904

REACTIONS (1)
  - Malaise [Unknown]
